FAERS Safety Report 11670782 (Version 1)
Quarter: 2015Q4

REPORT INFORMATION
  Report Type: Spontaneous
  Country: US (occurrence: US)
  Receive Date: 20151027
  Receipt Date: 20151027
  Transmission Date: 20160304
  Serious: No
  Sender: FDA-Public Use
  Company Number: US-ELI_LILLY_AND_COMPANY-US201004002036

PATIENT
  Sex: Female

DRUGS (2)
  1. FORTEO [Suspect]
     Active Substance: TERIPARATIDE
     Dosage: 20 UG, 2/W
     Dates: start: 2010
  2. FORTEO [Suspect]
     Active Substance: TERIPARATIDE
     Indication: OSTEOPOROSIS
     Dosage: 20 UG, DAILY (1/D)
     Dates: start: 201002, end: 20100412

REACTIONS (8)
  - Malaise [Recovered/Resolved]
  - Constipation [Recovered/Resolved]
  - Incorrect dose administered [Not Recovered/Not Resolved]
  - Asthenia [Recovered/Resolved]
  - Sluggishness [Recovered/Resolved]
  - Fatigue [Recovered/Resolved]
  - Irritability [Recovered/Resolved]
  - Nausea [Recovered/Resolved]

NARRATIVE: CASE EVENT DATE: 2010
